FAERS Safety Report 25124203 (Version 1)
Quarter: 2025Q1

REPORT INFORMATION
  Report Type: Spontaneous
  Country: JP (occurrence: JP)
  Receive Date: 20250326
  Receipt Date: 20250326
  Transmission Date: 20250409
  Serious: Yes (Other)
  Sender: AMGEN
  Company Number: JP-AMGEN-JPNSP2024214680

PATIENT
  Sex: Female

DRUGS (7)
  1. BLINCYTO [Suspect]
     Active Substance: BLINATUMOMAB
     Indication: B precursor type acute leukaemia
     Dosage: 9 MICROGRAM, QD, CONTINUOUS IV DRIP INFUSION
     Route: 040
     Dates: start: 20241022, end: 20241024
  2. BLINCYTO [Suspect]
     Active Substance: BLINATUMOMAB
     Dosage: 9 MICROGRAM, QD, RESUMED, CONTINUOUS IV DRIP INFUSION
     Route: 040
     Dates: start: 20241025, end: 20241026
  3. BLINCYTO [Suspect]
     Active Substance: BLINATUMOMAB
     Dosage: 9 MICROGRAM, QD, RESUMED, CONTINUOUS IV DRIP INFUSION
     Route: 040
     Dates: start: 20241026, end: 20241027
  4. BLINCYTO [Suspect]
     Active Substance: BLINATUMOMAB
     Route: 040
     Dates: start: 20241028, end: 2024
  5. BLINCYTO [Suspect]
     Active Substance: BLINATUMOMAB
     Route: 040
     Dates: start: 20241111, end: 202411
  6. BLINCYTO [Suspect]
     Active Substance: BLINATUMOMAB
     Route: 040
     Dates: start: 20241203, end: 202412
  7. BLINCYTO [Suspect]
     Active Substance: BLINATUMOMAB
     Route: 040
     Dates: end: 20250308

REACTIONS (6)
  - Lung cancer metastatic [Unknown]
  - Cytokine release syndrome [Recovered/Resolved]
  - Nervous system disorder [Recovered/Resolved]
  - Tremor [Recovered/Resolved]
  - Hypoaesthesia [Recovered/Resolved]
  - Pyrexia [Recovering/Resolving]

NARRATIVE: CASE EVENT DATE: 20241023
